FAERS Safety Report 18876273 (Version 1)
Quarter: 2021Q1

REPORT INFORMATION
  Report Type: Spontaneous
  Country: US (occurrence: US)
  Receive Date: 20210211
  Receipt Date: 20210211
  Transmission Date: 20210420
  Serious: Yes (Hospitalization)
  Sender: FDA-Public Use
  Company Number: US-B.I. PHARMACEUTICALS,INC./RIDGEFIELD-2021-BI-081159

PATIENT
  Age: 83 Year
  Sex: Male

DRUGS (1)
  1. PRADAXA [Suspect]
     Active Substance: DABIGATRAN ETEXILATE MESYLATE
     Indication: CEREBROVASCULAR ACCIDENT PROPHYLAXIS
     Dosage: 150MG BID
     Dates: start: 2014

REACTIONS (3)
  - Fatigue [Recovered/Resolved]
  - Arteriosclerosis [Recovered/Resolved]
  - Chest pain [Recovering/Resolving]

NARRATIVE: CASE EVENT DATE: 20210109
